FAERS Safety Report 6365427-X (Version None)
Quarter: 2009Q3

REPORT INFORMATION
  Report Type: 
  Country: None (occurrence: None)
  Receive Date: 20090919
  Receipt Date: 20090813
  Transmission Date: 20100115
  Serious: No
  Sender: FDA-Public Use
  Company Number: US-ABBOTT-09P-163-0591286-00

PATIENT
  Sex: Male

DRUGS (3)
  1. HUMIRA [Suspect]
     Indication: PSORIASIS
     Dosage: LOADING DOSE
     Dates: start: 20090601
  2. HUMIRA [Suspect]
     Indication: PSORIATIC ARTHROPATHY
  3. HUMIRA [Suspect]

REACTIONS (4)
  - ARTHRALGIA [None]
  - GAIT DISTURBANCE [None]
  - GOUT [None]
  - OEDEMA PERIPHERAL [None]
